FAERS Safety Report 9099749 (Version 3)
Quarter: 2013Q1

REPORT INFORMATION
  Report Type: Report from Study
  Country: BR (occurrence: BR)
  Receive Date: 20130214
  Receipt Date: 20130312
  Transmission Date: 20140127
  Serious: Yes (Other)
  Sender: FDA-Public Use
  Company Number: BR-ABBOTT-13P-020-1049237-00

PATIENT
  Sex: Female
  Weight: 82.5 kg

DRUGS (2)
  1. HUMIRA [Suspect]
     Indication: RHEUMATOID ARTHRITIS
     Route: 058
     Dates: start: 20120322, end: 201208
  2. HUMIRA [Suspect]
     Route: 058

REACTIONS (5)
  - Renal disorder [Unknown]
  - Device related infection [Not Recovered/Not Resolved]
  - Surgery [Unknown]
  - Surgery [Unknown]
  - Surgery [Unknown]
